FAERS Safety Report 5402466-7 (Version None)
Quarter: 2007Q3

REPORT INFORMATION
  Report Type: 
  Country: None (occurrence: None)
  Receive Date: 20070801
  Receipt Date: 20060619
  Transmission Date: 20080115
  Serious: No
  Sender: FDA-Public Use
  Company Number: A0609564A

PATIENT
  Age: 44 Year
  Sex: Male

DRUGS (12)
  1. IMITREX [Suspect]
     Indication: MIGRAINE
     Dosage: 100MG PER DAY
     Route: 048
     Dates: start: 20010101
  2. NOVESIN [Concomitant]
  3. TRAMADOL HCL [Concomitant]
  4. LYRICA [Concomitant]
  5. ALBUTEROL [Concomitant]
  6. UNKNOWN MEDICATION [Concomitant]
  7. LIBRIUM [Concomitant]
  8. DEPAKOTE [Concomitant]
  9. TRAZODONE HCL [Concomitant]
  10. EFFEXOR [Concomitant]
  11. NEURONTIN [Concomitant]
  12. ASPIRIN [Concomitant]

REACTIONS (2)
  - DRUG INEFFECTIVE [None]
  - OVERDOSE [None]
